FAERS Safety Report 5638278-9 (Version None)
Quarter: 2008Q1

REPORT INFORMATION
  Report Type: 
  Country: None (occurrence: None)
  Receive Date: 20080226
  Receipt Date: 20080214
  Transmission Date: 20080703
  Serious: Yes (Hospitalization)
  Sender: FDA-Public Use
  Company Number: ES-BAYER-200813348GPV

PATIENT
  Age: 84 Year
  Sex: Male

DRUGS (5)
  1. ADIRO 300 MG/ ASA [Suspect]
     Indication: DRUG USE FOR UNKNOWN INDICATION
     Dosage: TOTAL DAILY DOSE: 300 MG  UNIT DOSE: 300 MG
     Route: 048
     Dates: start: 20070101, end: 20071124
  2. CO-DIOVAN FORTE 160 MG/ 25 MG (HYDROCHLOROTHIAZIDE/ VALSARTAN) [Concomitant]
     Indication: HYPERTENSION
     Dosage: TOTAL DAILY DOSE: 185 MG  UNIT DOSE: 185 MG
     Route: 048
  3. FAMOTIDINE [Concomitant]
     Indication: DRUG USE FOR UNKNOWN INDICATION
     Route: 048
     Dates: end: 20071124
  4. LOGIMAX (METOPROLOL SUCCINATE / FELODIPINE) [Concomitant]
     Indication: HYPERTENSION
     Route: 048
  5. ZITROMAX/ AZITROMICINE [Concomitant]
     Indication: RESPIRATORY TRACT INFECTION
     Route: 048
     Dates: start: 20071123, end: 20071124

REACTIONS (1)
  - DUODENAL ULCER [None]
